FAERS Safety Report 15493404 (Version 1)
Quarter: 2018Q4

REPORT INFORMATION
  Report Type: Report from Study
  Country: CA (occurrence: CA)
  Receive Date: 20181012
  Receipt Date: 20181012
  Transmission Date: 20190205
  Serious: Yes (Hospitalization, Other)
  Sender: FDA-Public Use
  Company Number: CA-JNJFOC-20181002905

PATIENT
  Age: 44 Year
  Sex: Male
  Weight: 50 kg

DRUGS (1)
  1. REMICADE [Suspect]
     Active Substance: INFLIXIMAB
     Indication: CROHN^S DISEASE
     Dosage: STRENGTH = 100 MG
     Route: 042
     Dates: start: 20180913, end: 20181003

REACTIONS (4)
  - Off label use [Unknown]
  - Arthritis [Recovering/Resolving]
  - Abdominal abscess [Unknown]
  - Product use issue [Unknown]

NARRATIVE: CASE EVENT DATE: 2018
